FAERS Safety Report 16041655 (Version 1)
Quarter: 2019Q1

REPORT INFORMATION
  Report Type: Spontaneous
  Country: US (occurrence: US)
  Receive Date: 20190306
  Receipt Date: 20190306
  Transmission Date: 20190418
  Serious: Yes (Other)
  Sender: FDA-Public Use
  Company Number: US-PFIZER INC-2019087042

PATIENT
  Age: 61 Year
  Sex: Female
  Weight: 105.69 kg

DRUGS (1)
  1. GABAPENTIN. [Suspect]
     Active Substance: GABAPENTIN
     Indication: SPINAL CORD DISORDER
     Dosage: 300 MG, 2X/DAY
     Route: 048
     Dates: start: 201803

REACTIONS (4)
  - Depression [Unknown]
  - Tendon pain [Unknown]
  - Suicidal ideation [Unknown]
  - Drug ineffective for unapproved indication [Unknown]

NARRATIVE: CASE EVENT DATE: 201803
